FAERS Safety Report 25404117 (Version 1)
Quarter: 2025Q2

REPORT INFORMATION
  Report Type: Spontaneous
  Country: ES (occurrence: ES)
  Receive Date: 20250606
  Receipt Date: 20250606
  Transmission Date: 20250716
  Serious: Yes (Life-Threatening, Disabling)
  Sender: ROVIPHARM SAS
  Company Number: None

PATIENT
  Age: 42 Year
  Sex: Male
  Weight: 70 kg

DRUGS (1)
  1. RISPERIDONE [Suspect]
     Active Substance: RISPERIDONE
     Indication: Schizoaffective disorder
     Dosage: 100 MG
     Route: 030
     Dates: start: 20250116

REACTIONS (5)
  - Insomnia [Recovering/Resolving]
  - Suicidal ideation [Recovering/Resolving]
  - Parkinsonism [Recovering/Resolving]
  - Akathisia [Recovering/Resolving]
  - Muscle rigidity [Recovering/Resolving]

NARRATIVE: CASE EVENT DATE: 20250118
